FAERS Safety Report 11801186 (Version 1)
Quarter: 2015Q4

REPORT INFORMATION
  Report Type: Spontaneous
  Country: JP (occurrence: JP)
  Receive Date: 20151204
  Receipt Date: 20151204
  Transmission Date: 20160305
  Serious: Yes (Hospitalization, Other)
  Sender: FDA-Public Use
  Company Number: JP-ACTAVIS-2015-17276

PATIENT
  Age: 58 Year
  Sex: Female
  Weight: 60 kg

DRUGS (1)
  1. GEMCITABINE [Suspect]
     Active Substance: GEMCITABINE\GEMCITABINE HYDROCHLORIDE
     Indication: GALLBLADDER CANCER
     Dosage: UNK
     Route: 065

REACTIONS (3)
  - Haemolytic uraemic syndrome [Recovered/Resolved]
  - Raynaud^s phenomenon [Recovered/Resolved]
  - Antinuclear antibody positive [Recovered/Resolved]
